FAERS Safety Report 9529760 (Version 1)
Quarter: 2013Q1

REPORT INFORMATION
  Report Type: Spontaneous
  Country: US (occurrence: None)
  Receive Date: 20130329
  Receipt Date: 20130329
  Transmission Date: 20140127
  Serious: No
  Sender: FDA-Public Use
  Company Number: 1000042231

PATIENT
  Age: 48 Year
  Sex: Male

DRUGS (1)
  1. LINZESS [Suspect]
     Dosage: 145 MCG (145 MCG, 1 IN 1 D), ORAL
     Route: 048

REACTIONS (1)
  - Diarrhoea [None]
